FAERS Safety Report 7686225-0 (Version None)
Quarter: 2011Q3

REPORT INFORMATION
  Report Type: 
  Country: None (occurrence: None)
  Receive Date: 20110816
  Receipt Date: 20110809
  Transmission Date: 20111222
  Serious: Yes (Hospitalization)
  Sender: FDA-Public Use
  Company Number: GB-TEVA-296167ISR

PATIENT
  Sex: Male

DRUGS (5)
  1. DACARBAZINE [Suspect]
     Indication: METASTATIC MALIGNANT MELANOMA
     Dosage: 84.2857 MILLIGRAM;
     Route: 042
     Dates: start: 20100930
  2. GABAPENTIN [Concomitant]
     Dates: start: 20101031
  3. ACETAMINOPHEN [Concomitant]
     Dates: start: 20101103
  4. ORAMORPH SR [Concomitant]
     Dates: start: 20101101
  5. MORPHINE SULFATE [Concomitant]
     Dates: start: 20101115

REACTIONS (3)
  - SOFT TISSUE INFECTION [None]
  - PYREXIA [None]
  - LYMPHADENITIS [None]
